FAERS Safety Report 7582688-X (Version None)
Quarter: 2011Q2

REPORT INFORMATION
  Report Type: 
  Country: None (occurrence: None)
  Receive Date: 20110630
  Receipt Date: 20110615
  Transmission Date: 20111010
  Serious: Yes (Other)
  Sender: FDA-Public Use
  Company Number: CA-JNJFOC-20110608100

PATIENT
  Sex: Male
  Weight: 59 kg

DRUGS (1)
  1. REMICADE [Suspect]
     Indication: CROHN'S DISEASE
     Dosage: 100MG/VIAL
     Route: 042
     Dates: start: 20100101

REACTIONS (1)
  - CELLULITIS [None]
